FAERS Safety Report 22158172 (Version 1)
Quarter: 2023Q1

REPORT INFORMATION
  Report Type: Report from Study
  Country: US (occurrence: US)
  Receive Date: 20230330
  Receipt Date: 20230330
  Transmission Date: 20230418
  Serious: Yes (Hospitalization)
  Sender: FDA-Public Use
  Company Number: US-ACADIA PHARMACEUTICALS INC.-ACA-2023-PIM-001137

PATIENT
  Sex: Male

DRUGS (5)
  1. NUPLAZID [Suspect]
     Active Substance: PIMAVANSERIN TARTRATE
     Indication: Parkinson^s disease
     Dosage: 34 MILLIGRAM, QD
     Route: 048
  2. NUPLAZID [Suspect]
     Active Substance: PIMAVANSERIN TARTRATE
     Indication: Hallucination
  3. NUPLAZID [Suspect]
     Active Substance: PIMAVANSERIN TARTRATE
     Indication: Delusion
  4. CLOZAPINE [Suspect]
     Active Substance: CLOZAPINE
     Dosage: UNK
  5. CLOZAPINE [Suspect]
     Active Substance: CLOZAPINE
     Dosage: REDUCED DOSE

REACTIONS (9)
  - Paradoxical drug reaction [Not Recovered/Not Resolved]
  - Delusion [Not Recovered/Not Resolved]
  - Restlessness [Not Recovered/Not Resolved]
  - Depressed mood [Not Recovered/Not Resolved]
  - Bradykinesia [Not Recovered/Not Resolved]
  - Hallucination [Not Recovered/Not Resolved]
  - Confusional state [Not Recovered/Not Resolved]
  - Fall [Not Recovered/Not Resolved]
  - Hallucinations, mixed [Not Recovered/Not Resolved]
